FAERS Safety Report 8816695 (Version 2)
Quarter: 2013Q1

REPORT INFORMATION
  Report Type: Spontaneous
  Country: US (occurrence: None)
  Receive Date: 20120928
  Receipt Date: 20121211
  Transmission Date: 20140127
  Serious: Yes (Hospitalization)
  Sender: FDA-Public Use
  Company Number: 2012-0916

PATIENT
  Age: 83 Year
  Sex: Male
  Weight: 58.06 kg

DRUGS (2)
  1. KYPROLIS [Suspect]
     Indication: PLASMA CELL MYELOMA
     Dates: start: 20120910, end: 20120910
  2. VITAMIN B12(CYANOCOBALAMIN) (CYANOCOBALAMIN) [Concomitant]

REACTIONS (2)
  - Pulmonary oedema [None]
  - Cardiac failure congestive [None]
